FAERS Safety Report 7396378-X (Version None)
Quarter: 2011Q1

REPORT INFORMATION
  Report Type: 
  Country: None (occurrence: None)
  Receive Date: 20110325
  Receipt Date: 20110316
  Transmission Date: 20110831
  Serious: Yes (Other)
  Sender: FDA-Public Use
  Company Number: 2011MA002653

PATIENT
  Age: 71 Year
  Sex: Male

DRUGS (1)
  1. AMLODIPINE BESYLATE [Suspect]
     Indication: BLOOD PRESSURE INCREASED
     Dosage: 10 MG; QD;

REACTIONS (3)
  - PANIC ATTACK [None]
  - PRODUCT SUBSTITUTION ISSUE [None]
  - DEPRESSION [None]
